FAERS Safety Report 4470117-4 (Version None)
Quarter: 2004Q3

REPORT INFORMATION
  Report Type: 
  Country: None (occurrence: None)
  Receive Date: 20040910
  Receipt Date: 20040709
  Transmission Date: 20050211
  Serious: No
  Sender: FDA-Public Use
  Company Number: 2004223477US

PATIENT
  Age: 70 Year
  Sex: Female

DRUGS (3)
  1. BEXTRA [Suspect]
     Indication: ARTHRITIS
     Dosage: 10 MG, QD, ORAL
     Route: 048
     Dates: start: 20040618
  2. AVANDIA [Concomitant]
  3. GLUCOSAMINE [Concomitant]

REACTIONS (3)
  - CHROMATURIA [None]
  - DYSURIA [None]
  - FAECES DISCOLOURED [None]
